FAERS Safety Report 8775918 (Version 5)
Quarter: 2013Q4

REPORT INFORMATION
  Report Type: Report from Study
  Country: CA (occurrence: CA)
  Receive Date: 20120910
  Receipt Date: 20131024
  Transmission Date: 20140711
  Serious: Yes (Hospitalization)
  Sender: FDA-Public Use
  Company Number: CA-ROCHE-1112469

PATIENT
  Age: 54 Year
  Sex: Female
  Weight: 73 kg

DRUGS (9)
  1. ACTEMRA [Suspect]
     Indication: RHEUMATOID ARTHRITIS
     Route: 042
     Dates: start: 20110912, end: 20120717
  2. RITUXAN [Suspect]
     Indication: RHEUMATOID ARTHRITIS
     Route: 042
     Dates: start: 20110401, end: 20110415
  3. NAPROSYN [Suspect]
     Indication: PRODUCT USED FOR UNKNOWN INDICATION
     Route: 065
  4. SULFASALAZINE [Concomitant]
  5. LOSEC (CANADA) [Concomitant]
  6. GABAPENTIN [Concomitant]
  7. CRANBERRY [Concomitant]
  8. VITAMIN C [Concomitant]
  9. METHOTREXATE [Concomitant]
     Route: 058

REACTIONS (5)
  - Pleural effusion [Not Recovered/Not Resolved]
  - Cystitis [Recovered/Resolved]
  - Femur fracture [Recovering/Resolving]
  - Infection [Unknown]
  - Weight decreased [Unknown]
